FAERS Safety Report 9520928 (Version 3)
Quarter: 2013Q4

REPORT INFORMATION
  Report Type: Spontaneous
  Country: US (occurrence: US)
  Receive Date: 20130913
  Receipt Date: 20131018
  Transmission Date: 20140711
  Serious: No
  Sender: FDA-Public Use
  Company Number: US-PFIZER INC-2013259524

PATIENT
  Age: 62 Year
  Sex: Female

DRUGS (8)
  1. DETROL LA [Suspect]
     Indication: HYPERTONIC BLADDER
     Dosage: 2 MG, UNK
  2. DETROL LA [Suspect]
     Dosage: 4 MG, 1X/DAY
     Route: 048
     Dates: start: 2010
  3. LIPITOR [Concomitant]
     Dosage: 40 MG, 1X/DAY
     Route: 048
  4. ADVAIR [Concomitant]
     Dosage: 100/ 50 UNK, 2X/DAY
  5. THIORIDAZINE [Concomitant]
     Dosage: 10 MG, 1X/DAY
     Route: 048
  6. OMEPRAZOLE [Concomitant]
     Dosage: 40 MG, 1X/DAY
  7. DICLOFENAC [Concomitant]
     Dosage: 75 MG, BID
  8. ESTRIOL [Concomitant]
     Dosage: UNK

REACTIONS (2)
  - Mucosal dryness [Unknown]
  - Drug ineffective [Unknown]
